FAERS Safety Report 9666191 (Version 2)
Quarter: 2013Q4

REPORT INFORMATION
  Report Type: Spontaneous
  Country: AU (occurrence: AU)
  Receive Date: 20131104
  Receipt Date: 20131104
  Transmission Date: 20140711
  Serious: Yes (Other)
  Sender: FDA-Public Use
  Company Number: PHHY2013AU117142

PATIENT
  Sex: Female
  Weight: 83 kg

DRUGS (4)
  1. EXFORGE HCT [Suspect]
     Indication: HYPERTENSION
     Dosage: 1 DF, (160MG VALS, 5MG AMLO, HCT UKN), FOR 10 DAYS
     Route: 048
     Dates: start: 20130815, end: 20130905
  2. PRISTIQ [Concomitant]
     Indication: DEPRESSION
     Dosage: 150 MG, QD
     Route: 048
     Dates: start: 20121011
  3. CRESTOR [Concomitant]
     Indication: LIPIDS INCREASED
     Dosage: 5 MG, QD
     Route: 048
     Dates: start: 20120711
  4. PANADOL OSTEO [Concomitant]
     Indication: FIBROMYALGIA
     Dosage: UNK UKN, UNK
     Route: 048
     Dates: start: 20120911

REACTIONS (3)
  - Fibromyalgia [Unknown]
  - Myalgia [Unknown]
  - Dizziness [Unknown]
